FAERS Safety Report 6084666-9 (Version None)
Quarter: 2009Q1

REPORT INFORMATION
  Report Type: 
  Country: None (occurrence: None)
  Receive Date: 20090217
  Receipt Date: 20090205
  Transmission Date: 20090719
  Serious: Yes (Hospitalization)
  Sender: FDA-Public Use
  Company Number: 2008JP005412

PATIENT
  Age: 72 Year
  Sex: Male
  Weight: 76 kg

DRUGS (3)
  1. VESICARE [Suspect]
     Indication: HYPERTONIC BLADDER
     Dosage: 10 MG, UID/QD, ORAL
     Route: 048
     Dates: start: 20080710, end: 20080828
  2. AMLODIN (AMLODIPINE BESILATE) PER ORAL NOS [Concomitant]
  3. MICARDIS [Concomitant]

REACTIONS (1)
  - ATRIOVENTRICULAR BLOCK COMPLETE [None]
